FAERS Safety Report 10142172 (Version 1)
Quarter: 2014Q2

REPORT INFORMATION
  Report Type: Report from Study
  Country: BR (occurrence: BR)
  Receive Date: 20140429
  Receipt Date: 20140429
  Transmission Date: 20141212
  Serious: Yes (Other)
  Sender: FDA-Public Use
  Company Number: PHHY2014BR051570

PATIENT
  Sex: Female
  Weight: 73 kg

DRUGS (4)
  1. ACLASTA [Suspect]
     Indication: OSTEOPOROSIS
     Dosage: ANNUAL
     Route: 042
     Dates: start: 2013
  2. PURAN T4 [Concomitant]
     Indication: THYROID DISORDER
     Dosage: 1 TIME DAILY
  3. PANTOPRAZOLE [Concomitant]
     Indication: GASTROOESOPHAGEAL REFLUX DISEASE
     Dosage: SPORADIC USE
  4. LIPLESS [Concomitant]
     Indication: BLOOD TRIGLYCERIDES ABNORMAL
     Dosage: 1 TIME AT NIGHT

REACTIONS (4)
  - Tooth fracture [Unknown]
  - Fall [Unknown]
  - Abasia [Unknown]
  - Injury [Unknown]
